FAERS Safety Report 16642322 (Version 1)
Quarter: 2019Q3

REPORT INFORMATION
  Report Type: Spontaneous
  Country: GB (occurrence: GB)
  Receive Date: 20190729
  Receipt Date: 20190729
  Transmission Date: 20191004
  Serious: Yes (Life-Threatening, Hospitalization)
  Sender: FDA-Public Use
  Company Number: GB-PFIZER INC-2019319241

PATIENT
  Age: 55 Year
  Sex: Female
  Weight: 79 kg

DRUGS (11)
  1. DIAZEPAM. [Concomitant]
     Active Substance: DIAZEPAM
  2. NAPROXEN. [Concomitant]
     Active Substance: NAPROXEN
  3. DEXAMETHASONE. [Concomitant]
     Active Substance: DEXAMETHASONE
  4. OXYCODONE [Concomitant]
     Active Substance: OXYCODONE
  5. MORPHINE [Concomitant]
     Active Substance: MORPHINE
  6. CITALOPRAM [Concomitant]
     Active Substance: CITALOPRAM HYDROBROMIDE
  7. OMEPRAZOLE. [Concomitant]
     Active Substance: OMEPRAZOLE
  8. PALBOCICLIB [Suspect]
     Active Substance: PALBOCICLIB
     Indication: BREAST CANCER METASTATIC
     Dosage: 125 MG, UNK
     Route: 048
     Dates: start: 20190213
  9. CASSIA SENNA [Concomitant]
     Active Substance: HERBALS\SENNOSIDES
  10. LAXIDO [Concomitant]
     Active Substance: POLYETHYLENE GLYCOL 3350\POTASSIUM CHLORIDE\SODIUM BICARBONATE\SODIUM CHLORIDE
  11. PARACETAMOL [Concomitant]
     Active Substance: ACETAMINOPHEN

REACTIONS (3)
  - Dyspnoea [Unknown]
  - Pneumonitis [Recovering/Resolving]
  - Hypoxia [Unknown]

NARRATIVE: CASE EVENT DATE: 20190507
